FAERS Safety Report 6257260-4 (Version None)
Quarter: 2009Q3

REPORT INFORMATION
  Report Type: 
  Country: None (occurrence: None)
  Receive Date: 20090706
  Receipt Date: 20090630
  Transmission Date: 20100115
  Serious: Yes (Life-Threatening, Other)
  Sender: FDA-Public Use
  Company Number: US-CELGENEUS-163-21880-08120598

PATIENT
  Sex: Male

DRUGS (4)
  1. REVLIMID [Suspect]
     Indication: MULTIPLE MYELOMA
     Route: 048
     Dates: start: 20080717, end: 20080926
  2. PROCRIT [Concomitant]
     Route: 065
     Dates: start: 20060601
  3. ZOMETA [Concomitant]
     Indication: MULTIPLE MYELOMA
     Route: 065
     Dates: start: 20011201
  4. DEXAMETHASONE [Concomitant]
     Indication: MULTIPLE MYELOMA
     Route: 065
     Dates: start: 20080717

REACTIONS (2)
  - INTESTINAL PERFORATION [None]
  - NEUROPATHY PERIPHERAL [None]
